FAERS Safety Report 10448667 (Version 6)
Quarter: 2023Q1

REPORT INFORMATION
  Report Type: Spontaneous
  Country: FR (occurrence: FR)
  Receive Date: 20140912
  Receipt Date: 20230329
  Transmission Date: 20230418
  Serious: Yes (Life-Threatening, Hospitalization, Other)
  Sender: FDA-Public Use
  Company Number: FR-AUROBINDO-AUR-APL-2014-09443

PATIENT
  Age: 67 Year
  Sex: Male
  Weight: 50 kg

DRUGS (6)
  1. AMLODIPINE [Interacting]
     Active Substance: AMLODIPINE BESYLATE
     Indication: Product used for unknown indication
     Dosage: UNK
     Route: 065
  2. HYDROCHLOROTHIAZIDE\TELMISARTAN [Interacting]
     Active Substance: HYDROCHLOROTHIAZIDE\TELMISARTAN
     Indication: Product used for unknown indication
     Dosage: UNK
     Route: 065
  3. XARELTO [Interacting]
     Active Substance: RIVAROXABAN
     Indication: Atrial fibrillation
     Dosage: 15 MILLIGRAM, ONCE A DAY
     Route: 048
     Dates: start: 20121220, end: 20130224
  4. BETAXOLOL [Concomitant]
     Active Substance: BETAXOLOL
     Indication: Product used for unknown indication
     Dosage: UNK
     Route: 065
  5. ROSUVASTATIN [Concomitant]
     Active Substance: ROSUVASTATIN
     Indication: Product used for unknown indication
     Dosage: UNK
     Route: 065
  6. FLECAINIDE [Concomitant]
     Active Substance: FLECAINIDE
     Indication: Product used for unknown indication
     Dosage: UNK
     Route: 065

REACTIONS (16)
  - Splenic rupture [Recovered/Resolved]
  - Shock haemorrhagic [Recovered/Resolved]
  - Multiple organ dysfunction syndrome [Recovered/Resolved]
  - Abdominal pain [Recovered/Resolved]
  - Dizziness [Recovered/Resolved]
  - Drug interaction [Recovered/Resolved]
  - Gastrointestinal ischaemia [Recovered/Resolved]
  - Cold sweat [Unknown]
  - Blood pressure decreased [Recovered/Resolved]
  - Splenectomy [Recovered/Resolved]
  - Colectomy [Recovered/Resolved]
  - Intestinal ischaemia [Recovered/Resolved]
  - Multi-organ disorder [Unknown]
  - Haemorrhage [Recovered/Resolved with Sequelae]
  - Haemoperitoneum [Recovered/Resolved with Sequelae]
  - Potentiating drug interaction [Unknown]

NARRATIVE: CASE EVENT DATE: 20130224
